FAERS Safety Report 14179070 (Version 2)
Quarter: 2017Q4

REPORT INFORMATION
  Report Type: Spontaneous
  Country: DK (occurrence: DK)
  Receive Date: 20171110
  Receipt Date: 20171208
  Transmission Date: 20180321
  Serious: Yes (Life-Threatening, Hospitalization)
  Sender: FDA-Public Use
  Company Number: DK-CELGENEUS-DNK-20171101075

PATIENT
  Age: 57 Year
  Sex: Male

DRUGS (3)
  1. FARYDAK [Suspect]
     Active Substance: PANOBINOSTAT
     Indication: PLASMA CELL MYELOMA
     Dosage: 10 MILLIGRAM
     Route: 048
     Dates: end: 20170811
  2. DARZALEX [Suspect]
     Active Substance: DARATUMUMAB
     Indication: PLASMA CELL MYELOMA
     Dosage: 16 MILLIGRAM/KILOGRAM
     Route: 041
     Dates: start: 20170209, end: 20171011
  3. IMNOVID [Suspect]
     Active Substance: POMALIDOMIDE
     Indication: PLASMA CELL MYELOMA
     Dosage: 4 MILLIGRAM
     Route: 048
     Dates: start: 20170207, end: 20171011

REACTIONS (5)
  - Encephalitis [Recovered/Resolved]
  - Pleocytosis [Recovered/Resolved]
  - Speech disorder [Recovered/Resolved]
  - Confusional state [Recovered/Resolved]
  - Abnormal behaviour [Recovered/Resolved]

NARRATIVE: CASE EVENT DATE: 2017
